FAERS Safety Report 10004948 (Version 1)
Quarter: 2014Q1

REPORT INFORMATION
  Report Type: Report from Study
  Country: US (occurrence: US)
  Receive Date: 20140312
  Receipt Date: 20140312
  Transmission Date: 20141002
  Serious: Yes (Hospitalization)
  Sender: FDA-Public Use
  Company Number: PHEH2014US004877

PATIENT
  Age: 65 Year
  Sex: Male

DRUGS (1)
  1. AFINITOR [Suspect]
     Indication: CARCINOID TUMOUR
     Dosage: 10 MG, QD
     Route: 048

REACTIONS (1)
  - Liver injury [Not Recovered/Not Resolved]
